FAERS Safety Report 4470494-4 (Version None)
Quarter: 2004Q4

REPORT INFORMATION
  Report Type: 
  Country: None (occurrence: None)
  Receive Date: 20041005
  Receipt Date: 20040924
  Transmission Date: 20050328
  Serious: No
  Sender: FDA-Public Use
  Company Number: 2004S1000159

PATIENT
  Age: 66 Year
  Sex: Female
  Weight: 63.5036 kg

DRUGS (5)
  1. OLUX FOAM [Suspect]
     Indication: PSORIASIS
     Dosage: 0.05 PCT; DAILY; TOP
     Route: 061
     Dates: start: 19990101
  2. VIOXX [Concomitant]
  3. ESTROGEN PATCH [Concomitant]
  4. CLARINEX [Concomitant]
  5. THYROID TAB [Concomitant]

REACTIONS (2)
  - ARTHROPATHY [None]
  - HERPES ZOSTER [None]
